FAERS Safety Report 24868128 (Version 2)
Quarter: 2025Q3

REPORT INFORMATION
  Report Type: Spontaneous
  Country: US (occurrence: US)
  Receive Date: 20250121
  Receipt Date: 20250810
  Transmission Date: 20251021
  Serious: No
  Sender: ALEXION PHARMACEUTICALS
  Company Number: US-AstraZeneca-CH-00787799A

PATIENT
  Age: 53 Year
  Sex: Female
  Weight: 54.422 kg

DRUGS (2)
  1. ULTOMIRIS [Suspect]
     Active Substance: RAVULIZUMAB-CWVZ
     Indication: Chronic graft versus host disease
  2. REZUROCK [Suspect]
     Active Substance: BELUMOSUDIL
     Route: 065

REACTIONS (1)
  - Bladder pain [Recovering/Resolving]

NARRATIVE: CASE EVENT DATE: 20250101
